FAERS Safety Report 25417936 (Version 1)
Quarter: 2025Q2

REPORT INFORMATION
  Report Type: Spontaneous
  Country: US (occurrence: None)
  Receive Date: 20250609
  Receipt Date: 20250609
  Transmission Date: 20250716
  Serious: Yes (Hospitalization)
  Sender: FDA-CTU
  Company Number: None

PATIENT
  Age: 55 Year
  Sex: Female

DRUGS (1)
  1. RINVOQ [Suspect]
     Active Substance: UPADACITINIB
     Dosage: FREQUENCY : DAILY;?
     Route: 048
     Dates: start: 20241218, end: 20250410

REACTIONS (5)
  - Left ventricular dysfunction [None]
  - Fall [None]
  - Dizziness [None]
  - Rib fracture [None]
  - Therapy cessation [None]

NARRATIVE: CASE EVENT DATE: 20250410
